FAERS Safety Report 10247359 (Version 4)
Quarter: 2014Q3

REPORT INFORMATION
  Report Type: Spontaneous
  Country: JP (occurrence: JP)
  Receive Date: 20140619
  Receipt Date: 20140718
  Transmission Date: 20150326
  Serious: Yes (Hospitalization, Other)
  Sender: FDA-Public Use
  Company Number: JP-009507513-1402JPN010891

PATIENT
  Age: 72 Year
  Sex: Male
  Weight: 74.4 kg

DRUGS (9)
  1. LIPIODOL [Concomitant]
     Active Substance: ETHIODIZED OIL
     Indication: HEPATOCELLULAR CARCINOMA
     Dosage: DAILY DOSAGE UNKNOWN
     Route: 013
     Dates: start: 201302
  2. ALCOHOL. [Concomitant]
     Active Substance: ALCOHOL
     Indication: HEPATOCELLULAR CARCINOMA
     Dosage: 15 ML, DIVIDED DOSE FREQUENCY UNKNOWN
     Route: 062
     Dates: start: 201302
  3. TAKEPRON [Concomitant]
     Active Substance: LANSOPRAZOLE
     Indication: GASTROOESOPHAGEAL REFLUX DISEASE
     Dosage: 15 MG, QD
     Route: 048
     Dates: start: 20130207, end: 20130316
  4. ALCOHOL. [Concomitant]
     Active Substance: ALCOHOL
     Dosage: 30 ML, DIVIDED DOSE FREQUENCY UNKNOWNUNK, UNKNOWN
     Route: 062
     Dates: start: 2013
  5. MITOMYCIN. [Concomitant]
     Active Substance: MITOMYCIN
     Indication: HEPATOCELLULAR CARCINOMA
     Dosage: DAILY DOSAGE UNKNOWN
     Route: 013
     Dates: start: 201302
  6. RADIOGRAPHIC CONTRAST MEDIUM (UNSPECIFIED) [Concomitant]
     Active Substance: UNSPECIFIED INGREDIENT
     Indication: HEPATOCELLULAR CARCINOMA
     Dosage: DAILY DOSAGE UNKNOWN
     Route: 013
     Dates: start: 201302
  7. GELATIN [Concomitant]
     Active Substance: GELATIN
     Indication: HEPATOCELLULAR CARCINOMA
     Dosage: UNK
     Route: 013
     Dates: start: 201302
  8. DOXORUBICIN HYDROCHLORIDE. [Concomitant]
     Active Substance: DOXORUBICIN HYDROCHLORIDE
     Indication: HEPATOCELLULAR CARCINOMA
     Dosage: DAILY DOSAGE UNKNOWN
     Route: 013
     Dates: start: 201302
  9. ORGARAN [Suspect]
     Active Substance: DANAPAROID SODIUM
     Indication: PORTAL VEIN THROMBOSIS
     Dosage: 2.5 THOUSAND- MILLION UNIT
     Route: 042
     Dates: start: 20130227, end: 20130307

REACTIONS (2)
  - Intra-abdominal haemorrhage [Recovered/Resolved]
  - Packed red blood cell transfusion [Recovered/Resolved]

NARRATIVE: CASE EVENT DATE: 20130303
